FAERS Safety Report 16153974 (Version 2)
Quarter: 2019Q2

REPORT INFORMATION
  Report Type: Report from Study
  Country: CA (occurrence: CA)
  Receive Date: 20190403
  Receipt Date: 20190408
  Transmission Date: 20190711
  Serious: Yes (Death)
  Sender: FDA-Public Use
  Company Number: CA-HLSUS-2019-CA-000362

PATIENT
  Age: 72 Year
  Sex: Female

DRUGS (1)
  1. CLOZARIL [Suspect]
     Active Substance: CLOZAPINE
     Dosage: 75 MG IN THE MORNING AND 225 MG AT BEDTIME.
     Route: 048
     Dates: start: 20040625

REACTIONS (3)
  - Death [Fatal]
  - Cholecystitis [Unknown]
  - Sepsis [Unknown]

NARRATIVE: CASE EVENT DATE: 20190222
